FAERS Safety Report 25193212 (Version 2)
Quarter: 2025Q2

REPORT INFORMATION
  Report Type: Report from Study
  Country: US (occurrence: US)
  Receive Date: 20250414
  Receipt Date: 20250514
  Transmission Date: 20250717
  Serious: Yes (Hospitalization, Other)
  Sender: ABBVIE
  Company Number: US-ABBVIE-6211286

PATIENT
  Age: 62 Year
  Sex: Female

DRUGS (3)
  1. RINVOQ [Suspect]
     Active Substance: UPADACITINIB
     Indication: Colitis ulcerative
     Route: 048
     Dates: start: 20250318, end: 20250331
  2. RINVOQ [Suspect]
     Active Substance: UPADACITINIB
     Indication: Colitis ulcerative
     Dosage: STRENGTH ;45 MG?FOR 8 WEEKS?FIRST ADMIN DATE 2025
     Route: 048
  3. STELARA [Concomitant]
     Active Substance: USTEKINUMAB
     Indication: Product used for unknown indication

REACTIONS (9)
  - Incisional hernia [Not Recovered/Not Resolved]
  - Fatigue [Unknown]
  - Postoperative wound infection [Not Recovered/Not Resolved]
  - Incision site abscess [Not Recovered/Not Resolved]
  - Hypersomnia [Unknown]
  - Incision site haemorrhage [Unknown]
  - Colitis ulcerative [Unknown]
  - Rectal spasm [Unknown]
  - Proctalgia [Unknown]

NARRATIVE: CASE EVENT DATE: 20250101
